FAERS Safety Report 24648998 (Version 1)
Quarter: 2024Q4

REPORT INFORMATION
  Report Type: Spontaneous
  Country: US (occurrence: US)
  Receive Date: 20241121
  Receipt Date: 20241121
  Transmission Date: 20250114
  Serious: No
  Sender: MERCK
  Company Number: US-009507513-2411USA008695

PATIENT
  Age: 69 Year
  Sex: Female

DRUGS (4)
  1. PRIMAXIN IV [Suspect]
     Active Substance: CILASTATIN SODIUM\IMIPENEM
     Indication: Atypical mycobacterial infection
     Dosage: 4 DRUG INDUCTION FOR 6 WEEKS
  2. VANCOMYCIN [Concomitant]
     Active Substance: VANCOMYCIN
     Indication: Atypical mycobacterial infection
     Dosage: UNK
  3. DOXYCYCLINE [Concomitant]
     Active Substance: DOXYCYCLINE
     Indication: Atypical mycobacterial infection
     Dosage: 6 WEEKS INDUCTION FOR 6 WEEKS, CONSOLIDATION FOR 6 MONTHS
  4. SULFAMETHOXAZOLE\TRIMETHOPRIM [Concomitant]
     Active Substance: SULFAMETHOXAZOLE\TRIMETHOPRIM
     Indication: Atypical mycobacterial infection
     Dosage: 6 WEEKS INDUCTION FOR 6 WEEKS, CONSOLIDATION FOR 6 MONTHS

REACTIONS (1)
  - Off label use [Unknown]
